FAERS Safety Report 7023745-6 (Version None)
Quarter: 2010Q4

REPORT INFORMATION
  Report Type: 
  Country: None (occurrence: None)
  Receive Date: 20101001
  Receipt Date: 20100923
  Transmission Date: 20110411
  Serious: Yes (Other)
  Sender: FDA-Public Use
  Company Number: US-BAYER-201034718NA

PATIENT
  Age: 33 Year
  Sex: Female

DRUGS (2)
  1. MIRENA [Suspect]
     Indication: CONTRACEPTION
     Dosage: CONTINUOUS ADMINISTRATION
     Route: 015
     Dates: start: 20070303, end: 20100811
  2. MIRENA [Suspect]
     Dosage: CONTINUOUS ADMINISTRATION
     Route: 015
     Dates: start: 20100811

REACTIONS (3)
  - DEVICE EXPULSION [None]
  - DYSPLASIA [None]
  - SMEAR CERVIX ABNORMAL [None]
